FAERS Safety Report 9797881 (Version 4)
Quarter: 2017Q4

REPORT INFORMATION
  Report Type: Report from Study
  Country: DE (occurrence: DE)
  Receive Date: 20140106
  Receipt Date: 20171205
  Transmission Date: 20180321
  Serious: Yes (Hospitalization, Other)
  Sender: FDA-Public Use
  Company Number: PHHY2013DE154455

PATIENT
  Sex: Female
  Weight: 121 kg

DRUGS (10)
  1. ATACAND [Concomitant]
     Active Substance: CANDESARTAN CILEXETIL
     Indication: PRODUCT USED FOR UNKNOWN INDICATION
     Dosage: 16 MG, EVERY MORNING
     Route: 065
     Dates: start: 20061201
  2. VENLAFAXINE [Concomitant]
     Active Substance: VENLAFAXINE HYDROCHLORIDE
     Indication: DEPRESSED MOOD
     Dosage: 37.5 MG, QD
     Route: 048
     Dates: start: 20111005
  3. SIMVASTATIN. [Concomitant]
     Active Substance: SIMVASTATIN
     Indication: PRODUCT USED FOR UNKNOWN INDICATION
     Dosage: 40 MG, EVERY EVENING
     Route: 065
  4. MOVICOL [Concomitant]
     Active Substance: POLYETHYLENE GLYCOL 3350\POTASSIUM CHLORIDE\SODIUM BICARBONATE\SODIUM CHLORIDE
     Indication: PRODUCT USED FOR UNKNOWN INDICATION
     Route: 065
  5. GILENYA [Suspect]
     Active Substance: FINGOLIMOD HYDROCHLORIDE
     Indication: RELAPSING-REMITTING MULTIPLE SCLEROSIS
     Dosage: 0.5 MG, QD
     Route: 048
     Dates: start: 20110714, end: 20131005
  6. TEGRETOL [Concomitant]
     Active Substance: CARBAMAZEPINE
     Indication: EPILEPSY
     Dosage: 200 MG, EVERY MORNING
     Route: 048
     Dates: start: 19951001
  7. AMLODIPINE [Concomitant]
     Active Substance: AMLODIPINE BESYLATE
     Indication: PRODUCT USED FOR UNKNOWN INDICATION
     Dosage: 5 MG, EVERY MORNING
     Route: 065
  8. THYRONAJOD [Concomitant]
     Active Substance: LEVOTHYROXINE SODIUM\POTASSIUM IODIDE
     Indication: PRODUCT USED FOR UNKNOWN INDICATION
     Dosage: 100 UG, EVERY MORNING
     Route: 065
     Dates: start: 20110501
  9. EMSELEX [Concomitant]
     Active Substance: DARIFENACIN HYDROBROMIDE
     Indication: BLADDER DISORDER
     Dosage: 7.5 MG, QD
     Route: 048
     Dates: start: 20120806, end: 20120929
  10. ASA [Concomitant]
     Active Substance: ASPIRIN
     Indication: PRODUCT USED FOR UNKNOWN INDICATION
     Dosage: 100 MG, EVERY MORNING
     Route: 065

REACTIONS (19)
  - Haemoglobin decreased [Unknown]
  - Dysphagia [Unknown]
  - Fibrin D dimer increased [Unknown]
  - Fall [Unknown]
  - Visual acuity reduced [Unknown]
  - Red blood cell count decreased [Unknown]
  - Motor dysfunction [Unknown]
  - Blood pressure fluctuation [Unknown]
  - Blood thyroid stimulating hormone decreased [Unknown]
  - Dysarthria [Recovering/Resolving]
  - Blood creatinine decreased [Unknown]
  - Sensory loss [Unknown]
  - Blood chloride increased [Unknown]
  - Multiple sclerosis relapse [Unknown]
  - Hemiparesis [Recovering/Resolving]
  - Nystagmus [Unknown]
  - Central nervous system lesion [Unknown]
  - Gait disturbance [Unknown]
  - Aphasia [Unknown]

NARRATIVE: CASE EVENT DATE: 201308
